FAERS Safety Report 19774965 (Version 2)
Quarter: 2022Q2

REPORT INFORMATION
  Report Type: Spontaneous
  Country: US (occurrence: None)
  Receive Date: 20210901
  Receipt Date: 20220412
  Transmission Date: 20220720
  Serious: Yes (Disabling, Other)
  Sender: FDA-Public Use
  Company Number: 2021A698057

PATIENT
  Age: 59 Year
  Sex: Female
  Weight: 68 kg

DRUGS (47)
  1. NEXIUM [Suspect]
     Active Substance: ESOMEPRAZOLE MAGNESIUM
     Indication: Dyspepsia
     Dosage: FOR VARIOUS DATES AND YEARS
     Route: 048
  2. NEXIUM [Suspect]
     Active Substance: ESOMEPRAZOLE MAGNESIUM
     Indication: Dyspepsia
     Dosage: 40.0MG UNKNOWN
     Route: 048
     Dates: start: 2016, end: 2017
  3. PANTOPRAZOLE [Suspect]
     Active Substance: PANTOPRAZOLE
     Indication: Gastrooesophageal reflux disease
     Dosage: 40.0MG UNKNOWN
     Route: 065
     Dates: start: 2018
  4. ATORVASTATIN [Concomitant]
     Active Substance: ATORVASTATIN
  5. LISINOPRIL [Concomitant]
     Active Substance: LISINOPRIL
  6. CEPHALEXIN [Concomitant]
     Active Substance: CEPHALEXIN
  7. LASIX [Concomitant]
     Active Substance: FUROSEMIDE
  8. TRAMADOL [Concomitant]
     Active Substance: TRAMADOL
  9. AMOXICILLIN [Concomitant]
     Active Substance: AMOXICILLIN
  10. VITAMIN D3 [Concomitant]
     Active Substance: CHOLECALCIFEROL
  11. ASPIRIN [Concomitant]
     Active Substance: ASPIRIN
  12. POTASSIUM [Concomitant]
     Active Substance: POTASSIUM
  13. LIDOCAINE [Concomitant]
     Active Substance: LIDOCAINE
  14. VERSED [Concomitant]
     Active Substance: MIDAZOLAM HYDROCHLORIDE
  15. CLINDAMYCIN [Concomitant]
     Active Substance: CLINDAMYCIN
  16. FENTANYL [Concomitant]
     Active Substance: FENTANYL
  17. BENADRYL [Concomitant]
     Active Substance: DIPHENHYDRAMINE HYDROCHLORIDE
  18. CALCIUM ACETATE [Concomitant]
     Active Substance: CALCIUM ACETATE
  19. HEPARIN SODIUM [Concomitant]
     Active Substance: HEPARIN SODIUM
  20. ELIQUIN [Concomitant]
  21. METOPROLOL [Concomitant]
     Active Substance: METOPROLOL
  22. TETRAFERRIC TRICITRATE DECAHYDRATE [Concomitant]
     Active Substance: TETRAFERRIC TRICITRATE DECAHYDRATE
  23. FOLIC ACID [Concomitant]
     Active Substance: FOLIC ACID
  24. VITAMIN B COMPLEX [Concomitant]
     Active Substance: CYANOCOBALAMIN\DEXPANTHENOL\NIACINAMIDE\PYRIDOXINE HYDROCHLORIDE\RIBOFLAVIN 5^-PHOSPHATE SODIUM\THIA
  25. NOVOLOG [Concomitant]
     Active Substance: INSULIN ASPART
  26. GLIPIZIDE [Concomitant]
     Active Substance: GLIPIZIDE
  27. DIAZEPAM [Concomitant]
     Active Substance: DIAZEPAM
  28. MINERALS\VITAMINS [Concomitant]
     Active Substance: MINERALS\VITAMINS
  29. HYDROCHLOROTHIAZIDE [Concomitant]
     Active Substance: HYDROCHLOROTHIAZIDE
  30. TRILIPIX [Concomitant]
     Active Substance: FENOFIBRIC ACID
  31. AMITRIPTYLINE [Concomitant]
     Active Substance: AMITRIPTYLINE
  32. LEVOTHYROXINE SODIUM [Concomitant]
     Active Substance: LEVOTHYROXINE SODIUM
  33. LEVEMIR [Concomitant]
     Active Substance: INSULIN DETEMIR
  34. BACTROBAN [Concomitant]
     Active Substance: MUPIROCIN\MUPIROCIN CALCIUM
  35. AMLODIPINE [Concomitant]
     Active Substance: AMLODIPINE BESYLATE
  36. MEDROL [Concomitant]
     Active Substance: METHYLPREDNISOLONE
  37. PROAIR HFA [Concomitant]
     Active Substance: ALBUTEROL SULFATE
  38. QVAR [Concomitant]
     Active Substance: BECLOMETHASONE DIPROPIONATE
  39. NIFEDIPINE [Concomitant]
     Active Substance: NIFEDIPINE
  40. RENVELA [Concomitant]
     Active Substance: SEVELAMER CARBONATE
  41. SODIUM CHLORIDE [Concomitant]
     Active Substance: SODIUM CHLORIDE
  42. ROBAXIN [Concomitant]
     Active Substance: METHOCARBAMOL
  43. LABETALOL [Concomitant]
     Active Substance: LABETALOL\LABETALOL HYDROCHLORIDE
  44. BYDUREON [Concomitant]
     Active Substance: EXENATIDE
  45. DULERA [Concomitant]
     Active Substance: FORMOTEROL FUMARATE DIHYDRATE\MOMETASONE FUROATE
  46. ACETAMINOPHEN [Concomitant]
     Active Substance: ACETAMINOPHEN
  47. JANUMET [Concomitant]
     Active Substance: METFORMIN HYDROCHLORIDE\SITAGLIPTIN PHOSPHATE

REACTIONS (9)
  - Chronic kidney disease [Not Recovered/Not Resolved]
  - Acute kidney injury [Not Recovered/Not Resolved]
  - End stage renal disease [Not Recovered/Not Resolved]
  - Renal failure [Unknown]
  - Hypervolaemia [Unknown]
  - Metabolic acidosis [Unknown]
  - Nephrogenic anaemia [Unknown]
  - Rebound acid hypersecretion [Unknown]
  - Diabetes mellitus [Unknown]

NARRATIVE: CASE EVENT DATE: 20140101
